FAERS Safety Report 19854975 (Version 1)
Quarter: 2021Q3

REPORT INFORMATION
  Report Type: Spontaneous
  Country: US (occurrence: US)
  Receive Date: 20210918
  Receipt Date: 20210918
  Transmission Date: 20211014
  Serious: Yes (Disabling)
  Sender: FDA-Public Use
  Company Number: None

PATIENT
  Age: 31 Year
  Sex: Male
  Weight: 76.5 kg

DRUGS (4)
  1. ADVAIR DISKUS [Concomitant]
     Active Substance: FLUTICASONE PROPIONATE\SALMETEROL XINAFOATE
  2. ALLEGRA [Concomitant]
     Active Substance: FEXOFENADINE HYDROCHLORIDE
  3. ALVESCO [Concomitant]
     Active Substance: CICLESONIDE
  4. FINASTERIDE 0.1% + DUTASTERIDE 0.04% + MINOXIDIL 6% [Suspect]
     Active Substance: DUTASTERIDE\FINASTERIDE\MINOXIDIL
     Indication: ALOPECIA
     Dates: start: 20210910, end: 20210917

REACTIONS (9)
  - Male sexual dysfunction [None]
  - Vision blurred [None]
  - Mental disorder [None]
  - Suicidal ideation [None]
  - Anxiety [None]
  - Depression [None]
  - Skin burning sensation [None]
  - Obsessive thoughts [None]
  - Memory impairment [None]

NARRATIVE: CASE EVENT DATE: 20210915
